FAERS Safety Report 7729781-6 (Version None)
Quarter: 2011Q3

REPORT INFORMATION
  Report Type: 
  Country: None (occurrence: None)
  Receive Date: 20110906
  Receipt Date: 20110826
  Transmission Date: 20111222
  Serious: Yes (Death, Other)
  Sender: FDA-Public Use
  Company Number: DE-GENZYME-FLUD-1001366

PATIENT
  Age: 69 Year
  Sex: Male

DRUGS (12)
  1. TREOSULFAN [Suspect]
     Indication: ACUTE MYELOID LEUKAEMIA
     Dosage: 14000 MG/M2, UNK, DAYS -6 TO -4
     Route: 065
  2. ANTI-THYMOCYTE GLOBULIN NOS [Suspect]
     Indication: STEM CELL TRANSPLANT
  3. FLUCONAZOLE [Concomitant]
     Indication: ANTIFUNGAL PROPHYLAXIS
     Dosage: UNK, DAY -6 TO 0
     Route: 065
  4. CEFPODOXIME PROXETIL [Concomitant]
     Indication: INFECTION PROPHYLAXIS
     Dosage: UNK, FROM DAY -6 TO DAY 0
     Route: 065
  5. FLUDARA [Suspect]
     Indication: STEM CELL TRANSPLANT
  6. LEVOFLOXACIN [Concomitant]
     Indication: INFECTION PROPHYLAXIS
     Dosage: UNK, DAY 1 AND ONWARD
     Route: 065
  7. ANTI-THYMOCYTE GLOBULIN NOS [Suspect]
     Indication: ACUTE MYELOID LEUKAEMIA
     Dosage: 10 MG/KG, UNK, DAYS -4 TO -2
     Route: 065
  8. ACYCLOVIR [Concomitant]
     Indication: INFECTION PROPHYLAXIS
     Dosage: UNK, FROM DAY -6 ONWARD
     Route: 065
  9. FLUDARA [Suspect]
     Indication: ACUTE MYELOID LEUKAEMIA
     Dosage: 30 MG/M2, UNK, DAYS -6 TO -2
     Route: 065
  10. TREOSULFAN [Suspect]
     Indication: STEM CELL TRANSPLANT
  11. POSACONAZOLE [Concomitant]
     Indication: INFECTION PROPHYLAXIS
     Dosage: (2 X 400 MG/DAY)
     Route: 065
  12. PREDNISOLONE [Concomitant]
     Indication: IMMUNOSUPPRESSANT DRUG THERAPY
     Dosage: UNK
     Route: 065

REACTIONS (6)
  - MULTI-ORGAN FAILURE [None]
  - SEPSIS [None]
  - NEPHRITIS [None]
  - CEREBRAL HAEMORRHAGE [None]
  - EYE INFECTION FUNGAL [None]
  - FUSARIUM INFECTION [None]
